FAERS Safety Report 25610655 (Version 1)
Quarter: 2025Q3

REPORT INFORMATION
  Report Type: Spontaneous
  Country: EU (occurrence: EU)
  Receive Date: 20250728
  Receipt Date: 20250728
  Transmission Date: 20251021
  Serious: Yes (Other)
  Sender: APOTEX
  Company Number: EU-MLMSERVICE-20180730-1299517-1

PATIENT

DRUGS (2)
  1. PAROXETINE [Suspect]
     Active Substance: PAROXETINE
     Indication: Depression
     Dosage: 20 MG, QD
     Route: 065
  2. MIANSERIN [Suspect]
     Active Substance: MIANSERIN
     Indication: Depression
     Dosage: 30 MG, QD
     Route: 065

REACTIONS (4)
  - Gingival bleeding [Recovered/Resolved]
  - Contusion [Recovered/Resolved]
  - Platelet disorder [Recovered/Resolved]
  - Ecchymosis [Recovered/Resolved]
